FAERS Safety Report 16469869 (Version 2)
Quarter: 2019Q3

REPORT INFORMATION
  Report Type: Spontaneous
  Country: US (occurrence: US)
  Receive Date: 20190624
  Receipt Date: 20190731
  Transmission Date: 20191004
  Serious: No
  Sender: FDA-Public Use
  Company Number: US-SA-2019SA168842

PATIENT
  Age: 79 Year
  Sex: Male
  Weight: 65.77 kg

DRUGS (1)
  1. PRALUENT [Suspect]
     Active Substance: ALIROCUMAB
     Indication: BLOOD CHOLESTEROL INCREASED
     Dosage: 75 MG, QOW

REACTIONS (2)
  - Incorrect dose administered [Not Recovered/Not Resolved]
  - Device use issue [Not Recovered/Not Resolved]
